FAERS Safety Report 24122731 (Version 2)
Quarter: 2024Q3

REPORT INFORMATION
  Report Type: Spontaneous
  Country: UA (occurrence: UA)
  Receive Date: 20240723
  Receipt Date: 20240830
  Transmission Date: 20241017
  Serious: Yes (Other)
  Sender: NOVO NORDISK
  Company Number: UA-NOVOPROD-1255543

PATIENT
  Age: 672 Month
  Sex: Female

DRUGS (2)
  1. XULTOPHY 100/3.6 [Suspect]
     Active Substance: INSULIN DEGLUDEC\LIRAGLUTIDE
     Dosage: 19 IU, QD
     Route: 058
  2. XULTOPHY 100/3.6 [Suspect]
     Active Substance: INSULIN DEGLUDEC\LIRAGLUTIDE
     Indication: Type 2 diabetes mellitus
     Dosage: 24 IU, QD
     Route: 058
     Dates: start: 20240301

REACTIONS (2)
  - Loss of consciousness [Recovered/Resolved]
  - Dizziness [Recovered/Resolved]

NARRATIVE: CASE EVENT DATE: 20240501
